FAERS Safety Report 5255020-4 (Version None)
Quarter: 2007Q1

REPORT INFORMATION
  Report Type: 
  Country: None (occurrence: None)
  Receive Date: 20070305
  Receipt Date: 20070301
  Transmission Date: 20070707
  Serious: Yes (Death, Hospitalization)
  Sender: FDA-Public Use
  Company Number: US-BRISTOL-MYERS SQUIBB COMPANY-13640651

PATIENT
  Age: 59 Year
  Sex: Male
  Weight: 83 kg

DRUGS (11)
  1. PACLITAXEL [Suspect]
     Indication: PANCREATIC CARCINOMA
     Route: 042
     Dates: start: 20061218, end: 20061218
  2. CARBOPLATIN [Suspect]
     Indication: PANCREATIC CARCINOMA
     Route: 042
     Dates: start: 20061218, end: 20061218
  3. SUTENT [Suspect]
     Indication: PANCREATIC CARCINOMA
     Route: 048
     Dates: start: 20061220, end: 20061231
  4. COLACE [Concomitant]
     Indication: CONSTIPATION
     Route: 048
     Dates: start: 20060901, end: 20070101
  5. REQUIP [Concomitant]
     Indication: RESTLESS LEGS SYNDROME
     Route: 048
     Dates: start: 20061121, end: 20070101
  6. OXYCONTIN [Concomitant]
     Indication: PAIN
     Route: 048
     Dates: start: 20061211, end: 20070101
  7. OXYCODONE HCL [Concomitant]
     Indication: PAIN
     Route: 048
     Dates: start: 20061211, end: 20070101
  8. MAGNESIUM CITRATE [Concomitant]
     Indication: CONSTIPATION
     Dosage: DOSING: 250 CC
     Route: 048
     Dates: start: 20061216, end: 20070101
  9. MIRALAX [Concomitant]
     Indication: CONSTIPATION
     Dosage: DOSING: 1 TBSP
     Route: 048
     Dates: start: 20061218, end: 20070101
  10. SIMETHICONE [Concomitant]
     Indication: HICCUPS
     Route: 048
     Dates: start: 20061211, end: 20070101
  11. METOCLOPRAMIDE [Concomitant]
     Indication: HICCUPS
     Route: 048
     Dates: start: 20061220, end: 20070101

REACTIONS (2)
  - GASTROINTESTINAL HAEMORRHAGE [None]
  - SYNCOPE [None]
